FAERS Safety Report 15350454 (Version 2)
Quarter: 2018Q4

REPORT INFORMATION
  Report Type: Report from Study
  Country: RO (occurrence: RO)
  Receive Date: 20180905
  Receipt Date: 20181107
  Transmission Date: 20190204
  Serious: Yes (Death, Other)
  Sender: FDA-Public Use
  Company Number: RO-ROCHE-2180294

PATIENT
  Sex: Male
  Weight: 82 kg

DRUGS (1)
  1. ESBRIET [Suspect]
     Active Substance: PIRFENIDONE
     Indication: PULMONARY FIBROSIS
     Dosage: 9 PILLS/DAY
     Route: 048
     Dates: start: 20171010

REACTIONS (4)
  - Death [Fatal]
  - Malaise [Unknown]
  - Decreased appetite [Unknown]
  - Pulmonary hypertension [Unknown]
